FAERS Safety Report 19358550 (Version 1)
Quarter: 2021Q2

REPORT INFORMATION
  Report Type: Spontaneous
  Country: US (occurrence: US)
  Receive Date: 20210602
  Receipt Date: 20210602
  Transmission Date: 20210717
  Serious: No
  Sender: FDA-Public Use
  Company Number: None

PATIENT
  Age: 70 Year
  Sex: Female
  Weight: 47.7 kg

DRUGS (12)
  1. B6 [Concomitant]
     Active Substance: PYRIDOXINE HYDROCHLORIDE
  2. LYRICA [Suspect]
     Active Substance: PREGABALIN
     Indication: FIBROMYALGIA
     Dosage: ?          QUANTITY:1 CAPSULE(S);?
     Route: 048
     Dates: start: 20111214, end: 20111220
  3. HEARING AIDS [Concomitant]
  4. VITAMIN B COMPLEX [Concomitant]
     Active Substance: CYANOCOBALAMIN\DEXPANTHENOL\NIACINAMIDE\PYRIDOXINE HYDROCHLORIDE\RIBOFLAVIN 5^-PHOSPHATE SODIUM\THIAMINE HYDROCHLORIDE\VITAMIN B COMPLEX
  5. GARDEN OF LIFE [Concomitant]
  6. VITAMIN D3 [Concomitant]
     Active Substance: CHOLECALCIFEROL
  7. MULTIVITAMIN [Concomitant]
     Active Substance: VITAMINS
  8. VITAMIN B12 [Concomitant]
     Active Substance: CYANOCOBALAMIN
  9. LIDOCAINE PATCHES [Concomitant]
     Active Substance: LIDOCAINE
  10. PROBIOTIC [Concomitant]
     Active Substance: PROBIOTICS NOS
  11. CARISOPRODOL. [Concomitant]
     Active Substance: CARISOPRODOL
  12. TURMERIC [Concomitant]
     Active Substance: HERBALS\TURMERIC

REACTIONS (23)
  - Visual impairment [None]
  - Leukoplakia oral [None]
  - Infection [None]
  - Oropharyngeal pain [None]
  - Dizziness [None]
  - Musculoskeletal chest pain [None]
  - Oesophageal pain [None]
  - Intestinal metaplasia [None]
  - Rash [None]
  - Mood swings [None]
  - Clostridium difficile infection [None]
  - Nausea [None]
  - Pain [None]
  - Suicidal behaviour [None]
  - Vomiting [None]
  - Diarrhoea [None]
  - Insomnia [None]
  - Amnesia [None]
  - Headache [None]
  - Lymphadenopathy [None]
  - Vertigo [None]
  - Dysarthria [None]
  - Bell^s palsy [None]

NARRATIVE: CASE EVENT DATE: 20111202
